FAERS Safety Report 24119836 (Version 2)
Quarter: 2025Q1

REPORT INFORMATION
  Report Type: Spontaneous
  Country: US (occurrence: US)
  Receive Date: 20240722
  Receipt Date: 20250227
  Transmission Date: 20250408
  Serious: No
  Sender: PFIZER
  Company Number: US-PFIZER INC-PV202400094215

PATIENT
  Age: 37 Year
  Sex: Female
  Weight: 62.585 kg

DRUGS (3)
  1. PAXLOVID [Suspect]
     Active Substance: NIRMATRELVIR\RITONAVIR
     Indication: COVID-19 treatment
     Dosage: UNK UNK, 2X/DAY
     Route: 048
  2. PLAQUENIL [Concomitant]
     Active Substance: HYDROXYCHLOROQUINE SULFATE
     Indication: Systemic lupus erythematosus
     Dosage: 300 MG, 1X/DAY
  3. NALTREXONE [Concomitant]
     Active Substance: NALTREXONE
     Indication: Post-acute COVID-19 syndrome
     Dosage: 9 MG, 1X/DAY

REACTIONS (1)
  - COVID-19 [Recovered/Resolved with Sequelae]
